FAERS Safety Report 7564048-0 (Version None)
Quarter: 2011Q2

REPORT INFORMATION
  Report Type: 
  Country: None (occurrence: None)
  Receive Date: 20110622
  Receipt Date: 20110610
  Transmission Date: 20111010
  Serious: Yes (Other)
  Sender: FDA-Public Use
  Company Number: FR-VERTEX PHARMACEUTICALS INC.-AE-2011-000319

PATIENT

DRUGS (4)
  1. RIBAVIRIN [Concomitant]
     Indication: HEPATITIS C
  2. VX-950 [Suspect]
     Indication: HEPATITIS C
     Route: 048
     Dates: end: 20110616
  3. PEGINTERFERON ALFA-2A [Concomitant]
     Indication: HEPATITIS C
  4. PEGINTERFERON ALFA-2A [Concomitant]

REACTIONS (3)
  - NEUTROPENIA [None]
  - THROMBOCYTOPENIA [None]
  - TREATMENT NONCOMPLIANCE [None]
